FAERS Safety Report 5044595-6 (Version None)
Quarter: 2006Q2

REPORT INFORMATION
  Report Type: 
  Country: None (occurrence: None)
  Receive Date: 20060629
  Receipt Date: 20060614
  Transmission Date: 20061013
  Serious: Yes (Death, Hospitalization)
  Sender: FDA-Public Use
  Company Number: 110983ISR

PATIENT
  Age: 71 Year
  Sex: Female

DRUGS (2)
  1. CARBOPLATIN [Suspect]
     Indication: OVARIAN EPITHELIAL CANCER
  2. PACLITAXEL [Suspect]
     Indication: OVARIAN EPITHELIAL CANCER
     Dosage: INTRAVENOUS (NOS)
     Route: 042

REACTIONS (10)
  - ANURIA [None]
  - CARDIAC FAILURE [None]
  - DEAFNESS NEUROSENSORY [None]
  - FEBRILE NEUTROPENIA [None]
  - HAEMODIALYSIS [None]
  - NEUROTOXICITY [None]
  - OTOTOXICITY [None]
  - PANCYTOPENIA [None]
  - RENAL FAILURE ACUTE [None]
  - RENAL FAILURE CHRONIC [None]
